FAERS Safety Report 23317765 (Version 1)
Quarter: 2023Q4

REPORT INFORMATION
  Report Type: Spontaneous
  Country: US (occurrence: None)
  Receive Date: 20231219
  Receipt Date: 20231219
  Transmission Date: 20240109
  Serious: No
  Sender: FDA-Public Use
  Company Number: US-ROCHE-3386432

PATIENT
  Sex: Male

DRUGS (13)
  1. GAZYVA [Suspect]
     Active Substance: OBINUTUZUMAB
     Indication: Basal cell carcinoma
     Route: 065
  2. AMLODIPINE BESYLATE [Concomitant]
     Active Substance: AMLODIPINE BESYLATE
  3. COENZYME Q10 [Concomitant]
     Active Substance: DIETARY SUPPLEMENT\UBIDECARENONE
  4. GINGER [Concomitant]
     Active Substance: GINGER
  5. MAGNESIUM [Concomitant]
     Active Substance: MAGNESIUM
  6. METFORMIN HYDROCHLORIDE [Concomitant]
     Active Substance: METFORMIN HYDROCHLORIDE
  7. DIETARY SUPPLEMENT\PROBIOTICS [Concomitant]
     Active Substance: DIETARY SUPPLEMENT\PROBIOTICS NOS
  8. RAMIPRIL [Concomitant]
     Active Substance: RAMIPRIL
  9. DIETARY SUPPLEMENT\RESVERATROL [Concomitant]
     Active Substance: DIETARY SUPPLEMENT\RESVERATROL
  10. ROSUVASTATIN [Concomitant]
     Active Substance: ROSUVASTATIN
  11. TAMSULOSIN HYDROCHLORIDE [Concomitant]
     Active Substance: TAMSULOSIN HYDROCHLORIDE
  12. HERBALS\TURMERIC [Concomitant]
     Active Substance: HERBALS\TURMERIC
  13. VENLAFAXINE [Concomitant]
     Active Substance: VENLAFAXINE HYDROCHLORIDE

REACTIONS (2)
  - Off label use [Unknown]
  - No adverse event [Unknown]
